FAERS Safety Report 19575378 (Version 1)
Quarter: 2021Q3

REPORT INFORMATION
  Report Type: Spontaneous
  Country: US (occurrence: US)
  Receive Date: 20210716
  Receipt Date: 20210716
  Transmission Date: 20211014
  Serious: Yes (Other)
  Sender: FDA-Public Use
  Company Number: None

PATIENT
  Age: 19 Year
  Sex: Male
  Weight: 78.3 kg

DRUGS (1)
  1. CLARAVIS [Suspect]
     Active Substance: ISOTRETINOIN
     Indication: ACNE
     Dates: start: 20210211, end: 20210707

REACTIONS (4)
  - Anger [None]
  - Aggression [None]
  - Depressed mood [None]
  - Mood swings [None]

NARRATIVE: CASE EVENT DATE: 20210707
